FAERS Safety Report 15802887 (Version 5)
Quarter: 2025Q3

REPORT INFORMATION
  Report Type: Spontaneous
  Country: AU (occurrence: AU)
  Receive Date: 20190109
  Receipt Date: 20250916
  Transmission Date: 20251021
  Serious: Yes (Life-Threatening, Hospitalization, Other)
  Sender: PFIZER
  Company Number: AU-PFIZER INC-2019010123

PATIENT
  Age: 36 Year
  Sex: Female

DRUGS (14)
  1. CEFTRIAXONE SODIUM [Suspect]
     Active Substance: CEFTRIAXONE SODIUM
     Indication: Cholecystitis acute
  2. CEFTRIAXONE SODIUM [Suspect]
     Active Substance: CEFTRIAXONE SODIUM
     Indication: Bile duct stone
  3. METRONIDAZOLE [Suspect]
     Active Substance: METRONIDAZOLE
     Indication: Cholecystitis acute
  4. METRONIDAZOLE [Suspect]
     Active Substance: METRONIDAZOLE
     Indication: Bile duct stone
  5. CLINDAMYCIN PHOSPHATE [Suspect]
     Active Substance: CLINDAMYCIN PHOSPHATE
     Indication: Iatrogenic infection
  6. CIPROFLOXACIN [Suspect]
     Active Substance: CIPROFLOXACIN
     Indication: Iatrogenic infection
  7. PIPERACILLIN SODIUM\TAZOBACTAM SODIUM [Suspect]
     Active Substance: PIPERACILLIN SODIUM\TAZOBACTAM SODIUM
     Indication: Iatrogenic infection
  8. CEPHALEXIN [Suspect]
     Active Substance: CEPHALEXIN
     Indication: Rhinitis
  9. CEPHALEXIN [Suspect]
     Active Substance: CEPHALEXIN
     Indication: Pyrexia
  10. PENICILLIN G [Suspect]
     Active Substance: PENICILLIN G
     Indication: Iatrogenic infection
  11. OSELTAMIVIR [Suspect]
     Active Substance: OSELTAMIVIR
     Indication: Rhinitis
  12. OSELTAMIVIR [Suspect]
     Active Substance: OSELTAMIVIR
     Indication: Pyrexia
  13. ESCITALOPRAM [Suspect]
     Active Substance: ESCITALOPRAM OXALATE
     Indication: Crohn^s disease
  14. MESALAMINE [Concomitant]
     Active Substance: MESALAMINE
     Indication: Crohn^s disease

REACTIONS (4)
  - Hepatitis infectious mononucleosis [Recovering/Resolving]
  - Drug-induced liver injury [Recovered/Resolved]
  - Hypersensitivity [Recovered/Resolved]
  - Idiosyncratic drug reaction [Recovered/Resolved]
